FAERS Safety Report 4866280-3 (Version None)
Quarter: 2005Q4

REPORT INFORMATION
  Report Type: 
  Country: None (occurrence: None)
  Receive Date: 20051221
  Receipt Date: 20051207
  Transmission Date: 20060501
  Serious: Yes (Other)
  Sender: FDA-Public Use
  Company Number: US016495

PATIENT
  Age: 25 Year
  Sex: Female

DRUGS (5)
  1. GABITRIL [Suspect]
     Dosage: 8 MG TID ORAL
     Route: 048
  2. PHENYTOIN [Concomitant]
  3. CLONAZEPAM [Concomitant]
  4. FLUOXETINE [Concomitant]
  5. SEROQUEL [Concomitant]

REACTIONS (5)
  - COORDINATION ABNORMAL [None]
  - DISSOCIATION [None]
  - DYSPHASIA [None]
  - ENCEPHALOPATHY [None]
  - MUSCLE TWITCHING [None]
